FAERS Safety Report 6333213-2 (Version None)
Quarter: 2009Q3

REPORT INFORMATION
  Report Type: 
  Country: None (occurrence: None)
  Receive Date: 20090828
  Receipt Date: 20090825
  Transmission Date: 20100115
  Serious: No
  Sender: FDA-Public Use
  Company Number: US-B.I. PHARMACEUTICALS,INC./RIDGEFIELD-2009-BP-10027BP

PATIENT
  Sex: Male

DRUGS (2)
  1. MOBIC [Suspect]
  2. VITAMINS [Concomitant]

REACTIONS (1)
  - ALOPECIA [None]
